FAERS Safety Report 9009261 (Version 2)
Quarter: 2015Q1

REPORT INFORMATION
  Report Type: Spontaneous
  Country: US (occurrence: US)
  Receive Date: 20130111
  Receipt Date: 20150108
  Transmission Date: 20150721
  Serious: Yes (Hospitalization)
  Sender: FDA-Public Use
  Company Number: US-GLAXOSMITHKLINE-A1000565A

PATIENT
  Age: 53 Year
  Sex: Male

DRUGS (5)
  1. ADVAIR HFA [Suspect]
     Active Substance: FLUTICASONE PROPIONATE\SALMETEROL XINAFOATE
     Indication: CHRONIC OBSTRUCTIVE PULMONARY DISEASE
     Dosage: 250/50
     Route: 055
     Dates: start: 201209
  2. METOPROLOL [Concomitant]
     Active Substance: METOPROLOL
  3. VENTOLIN HFA [Concomitant]
     Active Substance: ALBUTEROL SULFATE
  4. LISINOPRIL. [Concomitant]
     Active Substance: LISINOPRIL
  5. VENTOLIN [Suspect]
     Active Substance: ALBUTEROL SULFATE
     Indication: CHRONIC OBSTRUCTIVE PULMONARY DISEASE
     Dosage: 90 MCG
     Route: 055
     Dates: start: 201209

REACTIONS (6)
  - Pharyngitis [Not Recovered/Not Resolved]
  - Oral discomfort [Unknown]
  - Sinus disorder [Unknown]
  - Rash [Unknown]
  - Drug ineffective [Unknown]
  - Unable to afford prescribed medication [Unknown]

NARRATIVE: CASE EVENT DATE: 201211
